FAERS Safety Report 5706085-4 (Version None)
Quarter: 2008Q2

REPORT INFORMATION
  Report Type: 
  Country: None (occurrence: None)
  Receive Date: 20080415
  Receipt Date: 20080403
  Transmission Date: 20081010
  Serious: Yes (Other)
  Sender: FDA-Public Use
  Company Number: US-PFIZER INC-2008019066

PATIENT
  Sex: Male

DRUGS (3)
  1. CHANTIX [Suspect]
  2. INSULIN [Concomitant]
  3. INSULIN INSULATARD NPH NORDISK [Concomitant]

REACTIONS (8)
  - ABNORMAL DREAMS [None]
  - BLOOD GLUCOSE FLUCTUATION [None]
  - DEHYDRATION [None]
  - DIZZINESS [None]
  - FEELING ABNORMAL [None]
  - FRUSTRATION [None]
  - SLEEP DISORDER [None]
  - TREMOR [None]
